FAERS Safety Report 22270369 (Version 2)
Quarter: 2023Q2

REPORT INFORMATION
  Report Type: Spontaneous
  Country: US (occurrence: US)
  Receive Date: 20230501
  Receipt Date: 20230508
  Transmission Date: 20230721
  Serious: No
  Sender: FDA-Public Use
  Company Number: US-Calliditas-2023CAL00417

PATIENT
  Age: 53 Year
  Sex: Male

DRUGS (9)
  1. TARPEYO [Suspect]
     Active Substance: BUDESONIDE
     Indication: IgA nephropathy
     Dosage: 16MG (4MG CAPSULES) DAILY
     Route: 048
     Dates: start: 20230321
  2. CARVEDILOL [Concomitant]
     Active Substance: CARVEDILOL
  3. LINZESS [Concomitant]
     Active Substance: LINACLOTIDE
  4. ESCITALOPRAM [Concomitant]
     Active Substance: ESCITALOPRAM OXALATE
  5. LAMOTRIGINE [Concomitant]
     Active Substance: LAMOTRIGINE
  6. SEVELAMER [Concomitant]
     Active Substance: SEVELAMER
  7. TAMSULOSIN [Concomitant]
     Active Substance: TAMSULOSIN
  8. ACETAMINOPHEN AND CODEINE [Concomitant]
     Active Substance: ACETAMINOPHEN\CODEINE PHOSPHATE
  9. TIZANIDINE [Concomitant]
     Active Substance: TIZANIDINE

REACTIONS (3)
  - Hot flush [Recovered/Resolved]
  - Paranoia [Recovered/Resolved]
  - Malaise [Recovered/Resolved]

NARRATIVE: CASE EVENT DATE: 20230301
